FAERS Safety Report 4808990-X (Version None)
Quarter: 2005Q4

REPORT INFORMATION
  Report Type: 
  Country: None (occurrence: None)
  Receive Date: 20051024
  Receipt Date: 20051017
  Transmission Date: 20060501
  Serious: Yes (Hospitalization)
  Sender: FDA-Public Use
  Company Number: GBWYE960907SEP05

PATIENT
  Age: 61 Year
  Sex: Female

DRUGS (9)
  1. EFFEXOR [Suspect]
     Dosage: SEE IMAGE
     Route: 048
     Dates: start: 20041001, end: 20050901
  2. EFFEXOR [Suspect]
     Dosage: SEE IMAGE
     Route: 048
     Dates: start: 20050101
  3. EFFEXOR [Suspect]
     Dosage: SEE IMAGE
     Route: 048
     Dates: start: 20050901
  4. CANDESARTAN (CANDESARTAN) [Concomitant]
  5. ATORVASTATIN CALCIUM [Concomitant]
  6. SECURON (VERAPAMIL HYDROCHLORIDE) [Concomitant]
  7. ASPIRIN [Concomitant]
  8. SERETIDE (SALMETEROL/FLUTICASONE) [Concomitant]
  9. BECODISK (BECLOMETASONE DIPROPIONATE) [Concomitant]

REACTIONS (6)
  - CONDITION AGGRAVATED [None]
  - CONTUSION [None]
  - EPILEPSY [None]
  - FALL [None]
  - LOSS OF CONSCIOUSNESS [None]
  - PETIT MAL EPILEPSY [None]
